FAERS Safety Report 20976880 (Version 1)
Quarter: 2022Q2

REPORT INFORMATION
  Report Type: Spontaneous
  Country: TR (occurrence: TR)
  Receive Date: 20220617
  Receipt Date: 20220617
  Transmission Date: 20220721
  Serious: Yes (Life-Threatening, Other)
  Sender: FDA-Public Use
  Company Number: TR-JNJFOC-20220632660

PATIENT
  Age: 50 Year
  Sex: Female

DRUGS (1)
  1. STELARA [Suspect]
     Active Substance: USTEKINUMAB
     Indication: Crohn^s disease
     Route: 040

REACTIONS (3)
  - Dyspnoea [Unknown]
  - Rash [Unknown]
  - Infusion related reaction [Unknown]
